FAERS Safety Report 5475565-1 (Version None)
Quarter: 2007Q4

REPORT INFORMATION
  Report Type: 
  Country: None (occurrence: None)
  Receive Date: 20071003
  Receipt Date: 20070611
  Transmission Date: 20080405
  Serious: No
  Sender: FDA-Public Use
  Company Number: US-KINGPHARMUSA00001-K200700720

PATIENT

DRUGS (1)
  1. SONATA [Suspect]
     Dosage: 20 MG, UNK
     Route: 048

REACTIONS (5)
  - ABNORMAL BEHAVIOUR [None]
  - AGGRESSION [None]
  - FEELING DRUNK [None]
  - MIDDLE INSOMNIA [None]
  - THINKING ABNORMAL [None]
